FAERS Safety Report 4945590-5 (Version None)
Quarter: 2006Q1

REPORT INFORMATION
  Report Type: 
  Country: None (occurrence: None)
  Receive Date: 20060316
  Receipt Date: 20050829
  Transmission Date: 20060701
  Serious: Yes (Hospitalization)
  Sender: FDA-Public Use
  Company Number: US-MERCK-0508USA04627

PATIENT
  Age: 52 Year
  Sex: Male
  Weight: 94 kg

DRUGS (3)
  1. VIOXX [Suspect]
     Indication: BACK PAIN
     Route: 048
     Dates: start: 20010101, end: 20030101
  2. ASPIRIN [Concomitant]
     Route: 065
  3. TYLENOL (CAPLET) [Concomitant]
     Route: 065

REACTIONS (7)
  - BACK PAIN [None]
  - CORONARY ARTERY DISEASE [None]
  - GAIT DISTURBANCE [None]
  - HEAT EXHAUSTION [None]
  - INJURY [None]
  - MYOCARDIAL INFARCTION [None]
  - PAIN IN EXTREMITY [None]
